FAERS Safety Report 14568993 (Version 1)
Quarter: 2018Q1

REPORT INFORMATION
  Report Type: Spontaneous
  Country: KR (occurrence: KR)
  Receive Date: 20180223
  Receipt Date: 20180223
  Transmission Date: 20180509
  Serious: Yes (Death, Hospitalization, Other)
  Sender: FDA-Public Use
  Company Number: KR-MYLANLABS-2018M1012599

PATIENT
  Age: 49 Year
  Sex: Male

DRUGS (3)
  1. DEXAMETHASONE. [Suspect]
     Active Substance: DEXAMETHASONE
     Indication: NON-SMALL CELL LUNG CANCER METASTATIC
     Dosage: 5 MG, Q6H
     Route: 042
  2. DEXAMETHASONE. [Suspect]
     Active Substance: DEXAMETHASONE
     Dosage: TAPERED OVER 14 DAYS
     Route: 042
  3. GEFITINIB. [Suspect]
     Active Substance: GEFITINIB
     Indication: NON-SMALL CELL LUNG CANCER METASTATIC
     Dosage: 250 MG/DAY
     Route: 048

REACTIONS (1)
  - Bronchopulmonary aspergillosis [Fatal]
